FAERS Safety Report 10601395 (Version 2)
Quarter: 2014Q4

REPORT INFORMATION
  Report Type: Spontaneous
  Country: US (occurrence: US)
  Receive Date: 20141124
  Receipt Date: 20141124
  Transmission Date: 20150529
  Serious: No
  Sender: FDA-Public Use
  Company Number: US-PFIZER INC-2014294633

PATIENT
  Age: 79 Year
  Sex: Male

DRUGS (3)
  1. PHENYTOIN SODIUM. [Suspect]
     Active Substance: PHENYTOIN SODIUM
     Indication: EPILEPSY
     Dosage: 100 MG, 3X/DAY
     Dates: start: 2011
  2. PRIMIDONE. [Concomitant]
     Active Substance: PRIMIDONE
     Dosage: UNK
     Dates: start: 2011
  3. MEBARAL [Concomitant]
     Active Substance: MEPHOBARBITAL
     Indication: SEIZURE
     Dosage: 100 MG, UNK
     Dates: start: 1974, end: 2011

REACTIONS (1)
  - Drug ineffective [Recovered/Resolved]
